FAERS Safety Report 19967176 (Version 1)
Quarter: 2021Q4

REPORT INFORMATION
  Report Type: Spontaneous
  Country: IT (occurrence: IT)
  Receive Date: 20211019
  Receipt Date: 20211019
  Transmission Date: 20220303
  Serious: Yes (Other)
  Sender: FDA-Public Use
  Company Number: IT-LUPIN PHARMACEUTICALS INC.-2021-19763

PATIENT
  Age: 52 Year
  Sex: Female

DRUGS (2)
  1. ZOLPIDEM [Suspect]
     Active Substance: ZOLPIDEM TARTRATE
     Indication: Insomnia
     Dosage: 450 MILLIGRAM, QD ((ONE BOTTLE AND HALF) BEDTIME)
     Route: 048
  2. ZOLPIDEM [Suspect]
     Active Substance: ZOLPIDEM TARTRATE
     Dosage: UNK SELF-REDUCE ZOLPIDEM DOSAGE
     Route: 048

REACTIONS (9)
  - Euphoric mood [Unknown]
  - Psychomotor hyperactivity [Unknown]
  - Drug abuse [Unknown]
  - Drug dependence [Unknown]
  - Vertigo [Unknown]
  - Anger [Unknown]
  - Irritability [Unknown]
  - Tremor [Unknown]
  - Withdrawal syndrome [Unknown]
